FAERS Safety Report 10390956 (Version 1)
Quarter: 2014Q3

REPORT INFORMATION
  Report Type: Spontaneous
  Country: US (occurrence: None)
  Receive Date: 20140815
  Receipt Date: 20140815
  Transmission Date: 20150326
  Serious: No
  Sender: FDA-Public Use
  Company Number: C-14-098

PATIENT
  Age: 65 Year
  Sex: Male

DRUGS (4)
  1. HYDRCHLOROTHIAZIDE [Concomitant]
  2. OXYCODONE [Suspect]
     Active Substance: OXYCODONE
     Indication: PAIN
     Dosage: 5-6X DAILY
     Route: 048
     Dates: start: 20140619
  3. COLCRYS [Concomitant]
     Active Substance: COLCHICINE
  4. COREG [Concomitant]
     Active Substance: CARVEDILOL

REACTIONS (1)
  - Drug ineffective [None]

NARRATIVE: CASE EVENT DATE: 201406
